FAERS Safety Report 5661793-9 (Version None)
Quarter: 2008Q1

REPORT INFORMATION
  Report Type: 
  Country: None (occurrence: None)
  Receive Date: 20080312
  Receipt Date: 20080305
  Transmission Date: 20080703
  Serious: Yes (Hospitalization)
  Sender: FDA-Public Use
  Company Number: US-JNJFOC-20080301193

PATIENT
  Age: 23 Year
  Sex: Male

DRUGS (1)
  1. RISPERDAL [Suspect]
     Indication: SCHIZOPHRENIA

REACTIONS (3)
  - ANXIETY [None]
  - HALLUCINATION, AUDITORY [None]
  - TREATMENT NONCOMPLIANCE [None]
